FAERS Safety Report 6288406-X (Version None)
Quarter: 2009Q3

REPORT INFORMATION
  Report Type: 
  Country: None (occurrence: None)
  Receive Date: 20090729
  Receipt Date: 20090722
  Transmission Date: 20100115
  Serious: Yes (Life-Threatening, Hospitalization)
  Sender: FDA-Public Use
  Company Number: A0786503A

PATIENT
  Sex: Male

DRUGS (11)
  1. SERETIDE [Suspect]
     Indication: CHRONIC OBSTRUCTIVE PULMONARY DISEASE
     Dates: start: 20030101
  2. FLUOXETINE [Concomitant]
     Dosage: 20MG PER DAY
     Dates: start: 20030101
  3. AMINOPHYLLINE [Concomitant]
     Dosage: 200MG THREE TIMES PER DAY
     Dates: start: 19890101
  4. PREDNISOLONE [Concomitant]
     Dosage: 20MG TWICE PER DAY
     Dates: start: 20040101
  5. CAPTOPRIL [Concomitant]
     Dosage: 1TAB THREE TIMES PER DAY
     Dates: start: 20030101
  6. GLUCOFORMIN [Concomitant]
     Dates: start: 20030101
  7. HYDROCHLOROTHIAZIDE [Concomitant]
     Dosage: 25MG TWICE PER DAY
     Dates: start: 20030101
  8. RANITIDINE [Concomitant]
     Dosage: 1TAB TWICE PER DAY
     Dates: start: 20030101
  9. BROMAZEPAN [Concomitant]
     Dosage: 3ML TWICE PER DAY
     Dates: start: 20030101
  10. INSULIN [Concomitant]
     Dosage: 3ML PER DAY
     Dates: start: 20081101
  11. OXYGEN [Concomitant]

REACTIONS (3)
  - CHEST PAIN [None]
  - FATIGUE [None]
  - PAIN [None]
